FAERS Safety Report 22214594 (Version 3)
Quarter: 2023Q2

REPORT INFORMATION
  Report Type: Spontaneous
  Country: CA (occurrence: CA)
  Receive Date: 20230415
  Receipt Date: 20230610
  Transmission Date: 20230722
  Serious: Yes (Other)
  Sender: FDA-Public Use
  Company Number: CA-CELLTRION INC.-2021CA012269

PATIENT

DRUGS (19)
  1. INFLECTRA [Suspect]
     Active Substance: INFLIXIMAB-DYYB
     Indication: Colitis ulcerative
     Dosage: 400 MG, (5 MG/KG) EVERY 8 WEEKS
     Route: 042
     Dates: start: 20210504
  2. INFLECTRA [Suspect]
     Active Substance: INFLIXIMAB-DYYB
     Dosage: 400 MG Q4 WEEKS
     Route: 042
     Dates: start: 20210504
  3. INFLECTRA [Suspect]
     Active Substance: INFLIXIMAB-DYYB
     Dosage: 400 MG, 5 MG/KG, EVERY 8 WEEKS
     Route: 042
     Dates: start: 20210513
  4. INFLECTRA [Suspect]
     Active Substance: INFLIXIMAB-DYYB
     Dosage: 400 MG, 5 MG/KG, EVERY 8 WEEKS (WEEK 6)
     Route: 042
     Dates: start: 20210615
  5. INFLECTRA [Suspect]
     Active Substance: INFLIXIMAB-DYYB
     Dosage: 400 MG, EVERY 8 WEEKS
     Route: 042
     Dates: start: 20210813
  6. INFLECTRA [Suspect]
     Active Substance: INFLIXIMAB-DYYB
     Dosage: 400 MG WEEKS 2 AND 6 ONLY CHECKED OFF, THEN EVERY (Q)4WEEKS.
     Route: 042
  7. INFLECTRA [Suspect]
     Active Substance: INFLIXIMAB-DYYB
     Dosage: 400 MG Q4 WEEKS
     Route: 042
     Dates: start: 20211105
  8. INFLECTRA [Suspect]
     Active Substance: INFLIXIMAB-DYYB
     Dosage: 400 MG Q4 WEEKS
     Route: 042
     Dates: start: 20220815
  9. INFLECTRA [Suspect]
     Active Substance: INFLIXIMAB-DYYB
     Dosage: 400 MG, EVERY 4 WEEKS
     Route: 042
     Dates: start: 20221014
  10. INFLECTRA [Suspect]
     Active Substance: INFLIXIMAB-DYYB
     Dosage: 400 MG Q4 WEEKS
     Route: 042
     Dates: start: 20221216
  11. INFLECTRA [Suspect]
     Active Substance: INFLIXIMAB-DYYB
     Dosage: 400 MG Q4 WEEKS
     Route: 042
     Dates: start: 20221216
  12. INFLECTRA [Suspect]
     Active Substance: INFLIXIMAB-DYYB
     Dosage: 400 MG Q4 WEEKS
     Route: 042
     Dates: start: 20230112
  13. INFLECTRA [Suspect]
     Active Substance: INFLIXIMAB-DYYB
     Dosage: 400 MG Q4 WEEKS
     Route: 042
     Dates: start: 20230112
  14. INFLECTRA [Suspect]
     Active Substance: INFLIXIMAB-DYYB
     Dosage: 400 MG Q4 WEEKS
     Route: 042
     Dates: start: 20230308
  15. INFLECTRA [Suspect]
     Active Substance: INFLIXIMAB-DYYB
     Dosage: 400 MG Q4 WEEKS
     Route: 042
     Dates: start: 20230308
  16. INFLECTRA [Suspect]
     Active Substance: INFLIXIMAB-DYYB
     Dosage: 400 MG EVERY 4 WEEKS
     Route: 042
     Dates: start: 20230406
  17. INFLECTRA [Suspect]
     Active Substance: INFLIXIMAB-DYYB
     Dosage: 400 MG EVERY 4 WEEKS
     Route: 042
     Dates: start: 20230601
  18. MESALAMINE [Concomitant]
     Active Substance: MESALAMINE
     Dosage: 4.8 MG, DAILY
  19. MESALAMINE [Concomitant]
     Active Substance: MESALAMINE
     Dosage: 4000 MG, 4X/DAY (QD)
     Route: 048

REACTIONS (8)
  - Nephrolithiasis [Unknown]
  - Sinusitis [Recovered/Resolved]
  - Arthralgia [Unknown]
  - Chemical burn [Unknown]
  - Burns second degree [Unknown]
  - Off label use [Unknown]
  - Off label use [Unknown]
  - Intentional product use issue [Unknown]

NARRATIVE: CASE EVENT DATE: 20210504
